FAERS Safety Report 5307119-1 (Version None)
Quarter: 2007Q2

REPORT INFORMATION
  Report Type: 
  Country: None (occurrence: None)
  Receive Date: 20070425
  Receipt Date: 20070416
  Transmission Date: 20071010
  Serious: Yes (Hospitalization, Other)
  Sender: FDA-Public Use
  Company Number: US-AMGEN-STX209636

PATIENT
  Sex: Female

DRUGS (11)
  1. ENBREL [Suspect]
     Indication: RHEUMATOID ARTHRITIS
     Route: 058
     Dates: start: 20000101
  2. PREDNISONE TAB [Concomitant]
     Dates: start: 20051228
  3. METHOTREXATE [Concomitant]
     Dates: start: 20060308, end: 20061120
  4. NEXIUM [Concomitant]
     Dates: start: 20060825, end: 20070208
  5. ROBAXIN [Concomitant]
     Dates: start: 20060921, end: 20061120
  6. ARICEPT [Concomitant]
     Dates: start: 20060804
  7. CYMBALTA [Concomitant]
     Dates: start: 20060128
  8. FOLIC ACID [Concomitant]
  9. SENOKOT [Concomitant]
     Route: 048
  10. LOPRESSOR [Concomitant]
     Route: 048
  11. TYLENOL [Concomitant]

REACTIONS (7)
  - DIABETES MELLITUS NON-INSULIN-DEPENDENT [None]
  - INJECTION SITE PAIN [None]
  - LUMBAR SPINAL STENOSIS [None]
  - NAUSEA [None]
  - OSTEOARTHRITIS [None]
  - UPPER RESPIRATORY TRACT INFECTION [None]
  - VOMITING [None]
